FAERS Safety Report 7252102-2 (Version None)
Quarter: 2011Q1

REPORT INFORMATION
  Report Type: 
  Country: None (occurrence: None)
  Receive Date: 20110128
  Receipt Date: 20100416
  Transmission Date: 20110831
  Serious: No
  Sender: FDA-Public Use
  Company Number: US-ABBOTT-10P-163-0639169-00

PATIENT
  Sex: Female
  Weight: 73.548 kg

DRUGS (2)
  1. HUMIRA [Suspect]
     Indication: RHEUMATOID ARTHRITIS
     Dates: start: 20080614
  2. HUMIRA [Suspect]
     Dates: end: 20100403

REACTIONS (1)
  - DRUG INEFFECTIVE [None]
